FAERS Safety Report 9215069 (Version 1)
Quarter: 2013Q2

REPORT INFORMATION
  Report Type: Spontaneous
  Country: ES (occurrence: ES)
  Receive Date: 20130405
  Receipt Date: 20130405
  Transmission Date: 20140414
  Serious: Yes (Other)
  Sender: FDA-Public Use
  Company Number: ES-AMGEN-ESPSP2013022597

PATIENT
  Age: 64 Year
  Sex: Male
  Weight: 82 kg

DRUGS (6)
  1. PANITUMUMAB [Suspect]
     Indication: PRODUCT USED FOR UNKNOWN INDICATION
     Dosage: 492 MG, UNK
     Dates: start: 20120912, end: 20130219
  2. FOLINIC ACID [Concomitant]
     Indication: ADENOCARCINOMA
     Dosage: UNK
     Dates: start: 20120807, end: 20130219
  3. 5 FU [Concomitant]
     Indication: ADENOCARCINOMA
     Dosage: 756 MG, UNK
     Route: 040
     Dates: start: 20120807, end: 20130219
  4. 5 FU [Concomitant]
     Dosage: 4550 MG INFUSION / 48 HOURS, UNK
     Route: 041
     Dates: start: 20120807, end: 20130219
  5. OXALIPLATIN [Concomitant]
     Indication: ADENOCARCINOMA
     Dosage: 160.65 MG, UNK
     Dates: start: 20120807, end: 20130219
  6. CETUXIMAB [Concomitant]
     Indication: ADENOCARCINOMA
     Dosage: 945 MG, UNK
     Dates: start: 20120807

REACTIONS (2)
  - Eczema [Recovered/Resolved]
  - Skin exfoliation [Recovered/Resolved]
